FAERS Safety Report 24453503 (Version 2)
Quarter: 2024Q4

REPORT INFORMATION
  Report Type: Report from Study
  Country: CA (occurrence: CA)
  Receive Date: 20241017
  Receipt Date: 20241018
  Transmission Date: 20250115
  Serious: No
  Sender: ROCHE
  Company Number: CA-ROCHE-3113485

PATIENT
  Sex: Female

DRUGS (11)
  1. RITUXAN [Suspect]
     Active Substance: RITUXIMAB
     Indication: Microscopic polyangiitis
     Route: 041
     Dates: start: 20200311, end: 20200401
  2. RITUXAN [Suspect]
     Active Substance: RITUXIMAB
     Indication: Anti-neutrophil cytoplasmic antibody positive vasculitis
     Route: 041
     Dates: start: 20201125, end: 20201209
  3. RITUXAN [Suspect]
     Active Substance: RITUXIMAB
     Dosage: SINGLE INFUSIONS
     Route: 041
     Dates: start: 20210609
  4. IBUPROFEN [Suspect]
     Active Substance: IBUPROFEN
     Indication: Pain
     Route: 065
  5. CALCIUM [Concomitant]
     Active Substance: CALCIUM
  6. FERROMAX [Concomitant]
  7. GABAPENTIN [Concomitant]
     Active Substance: GABAPENTIN
     Dosage: AT NIGHTTIME
  8. PREDNISONE [Concomitant]
     Active Substance: PREDNISONE
  9. CETIRIZINE HYDROCHLORIDE [Concomitant]
     Active Substance: CETIRIZINE HYDROCHLORIDE
  10. SYNTHROID [Concomitant]
     Active Substance: LEVOTHYROXINE SODIUM
  11. PANTOPRAZOLE MAGNESIUM [Concomitant]
     Active Substance: PANTOPRAZOLE MAGNESIUM

REACTIONS (8)
  - Pain in extremity [Unknown]
  - Peripheral swelling [Unknown]
  - Pain [Unknown]
  - Neuralgia [Unknown]
  - Arthralgia [Unknown]
  - Haemorrhage [Unknown]
  - Vasculitis [Unknown]
  - Haemoglobin decreased [Unknown]
